FAERS Safety Report 7642524-X (Version None)
Quarter: 2011Q3

REPORT INFORMATION
  Report Type: 
  Country: None (occurrence: None)
  Receive Date: 20110728
  Receipt Date: 20110714
  Transmission Date: 20111222
  Serious: Yes (Hospitalization, Other)
  Sender: FDA-Public Use
  Company Number: US-TYCO HEALTHCARE/MALLINCKRODT-T201101221

PATIENT
  Sex: Female

DRUGS (6)
  1. MULTIHANCE [Suspect]
     Dosage: 17 ML, SINGLE
     Dates: start: 20091119, end: 20091119
  2. OMNISCAN [Suspect]
     Indication: ANGIOGRAM
     Dosage: 40 ML, SINGLE
     Dates: start: 20070206, end: 20070206
  3. OPTIMARK [Suspect]
     Indication: ANGIOGRAM
  4. MULTIHANCE [Suspect]
     Indication: NUCLEAR MAGNETIC RESONANCE IMAGING
     Dosage: 15 ML, SINGLE
     Dates: start: 20080730, end: 20080730
  5. GADOLINIUM [Suspect]
     Indication: NUCLEAR MAGNETIC RESONANCE IMAGING
     Dosage: UNK
     Dates: start: 20100101, end: 20100101
  6. OPTIMARK [Suspect]
     Indication: NUCLEAR MAGNETIC RESONANCE IMAGING
     Dosage: UNK, SINGLE
     Route: 042
     Dates: start: 20060303, end: 20060303

REACTIONS (24)
  - SPINAL OSTEOARTHRITIS [None]
  - STAPHYLOCOCCAL BACTERAEMIA [None]
  - HYPOTENSION [None]
  - OSTEOMYELITIS [None]
  - SPINAL COLUMN STENOSIS [None]
  - VOMITING [None]
  - BLOOD PRESSURE INCREASED [None]
  - DEEP VEIN THROMBOSIS [None]
  - SEPSIS [None]
  - BACK PAIN [None]
  - LOCALISED INFECTION [None]
  - DIARRHOEA [None]
  - FALL [None]
  - INFECTIOUS PERITONITIS [None]
  - SYNCOPE [None]
  - HYPOACUSIS [None]
  - CHEST PAIN [None]
  - NEPHROGENIC SYSTEMIC FIBROSIS [None]
  - INTERVERTEBRAL DISCITIS [None]
  - ARTERIOSCLEROSIS [None]
  - HELICOBACTER INFECTION [None]
  - NAUSEA [None]
  - ABDOMINAL PAIN [None]
  - ANAEMIA [None]
